FAERS Safety Report 14579374 (Version 1)
Quarter: 2018Q1

REPORT INFORMATION
  Report Type: Spontaneous
  Country: US (occurrence: US)
  Receive Date: 20180227
  Receipt Date: 20180227
  Transmission Date: 20180509
  Serious: Yes (Other)
  Sender: FDA-Public Use
  Company Number: US-OTSUKA-DJ201406063

PATIENT

DRUGS (1)
  1. ABILIFY [Suspect]
     Active Substance: ARIPIPRAZOLE
     Indication: POST-TRAUMATIC STRESS DISORDER
     Route: 065
     Dates: start: 2010

REACTIONS (8)
  - Retinal degeneration [Unknown]
  - Retinal scar [Unknown]
  - Pain [Not Recovered/Not Resolved]
  - Off label use [Unknown]
  - Blood triglycerides increased [Unknown]
  - Nerve injury [Unknown]
  - Kidney enlargement [Not Recovered/Not Resolved]
  - Vision blurred [Unknown]

NARRATIVE: CASE EVENT DATE: 2010
